FAERS Safety Report 8538636-9 (Version None)
Quarter: 2012Q3

REPORT INFORMATION
  Report Type: 
  Country: None (occurrence: None)
  Receive Date: 20120718
  Receipt Date: 20120718
  Transmission Date: 20120928
  Serious: Yes (Disabling)
  Sender: FDA-Public Use
  Company Number: None

PATIENT
  Age: 81 Year
  Sex: Male
  Weight: 95.2554 kg

DRUGS (3)
  1. CIPROFLOXACIN [Suspect]
     Indication: GASTRIC DISORDER
     Dosage: 250 MG 2/DAY TAB
     Dates: start: 20110829
  2. METRONIDAZOLE [Concomitant]
  3. CIPROFLOXACIN [Suspect]
     Indication: GASTRIC DISORDER
     Dosage: 500 MG 2/DAY TAB
     Dates: start: 20110520

REACTIONS (4)
  - SPINAL COLUMN STENOSIS [None]
  - NO THERAPEUTIC RESPONSE [None]
  - MUSCULAR WEAKNESS [None]
  - WALKING AID USER [None]
